FAERS Safety Report 16757735 (Version 1)
Quarter: 2019Q3

REPORT INFORMATION
  Report Type: Spontaneous
  Country: GB (occurrence: GB)
  Receive Date: 20190830
  Receipt Date: 20190830
  Transmission Date: 20191005
  Serious: Yes (Other)
  Sender: FDA-Public Use
  Company Number: GB-009507513-1908GBR007460

PATIENT
  Age: 36 Year
  Sex: Male

DRUGS (2)
  1. GONADOTROPIN, CHORIONIC [Suspect]
     Active Substance: CHORIOGONADOTROPIN ALFA
     Indication: HYPOGONADISM MALE
     Dosage: 3 DOSAGE FORM, TOTAL
     Route: 058
     Dates: start: 201904, end: 201905
  2. TESTOSTERONE. [Concomitant]
     Active Substance: TESTOSTERONE
     Dosage: UNK

REACTIONS (6)
  - Syncope [Unknown]
  - Fatigue [Unknown]
  - Circulatory collapse [Unknown]
  - Feeling abnormal [Unknown]
  - Swelling face [Unknown]
  - Dizziness [Unknown]

NARRATIVE: CASE EVENT DATE: 201904
